FAERS Safety Report 7539935-X (Version None)
Quarter: 2011Q2

REPORT INFORMATION
  Report Type: 
  Country: None (occurrence: None)
  Receive Date: 20110610
  Receipt Date: 20110526
  Transmission Date: 20111010
  Serious: Yes (Hospitalization, Other)
  Sender: FDA-Public Use
  Company Number: US-BAYER-2011-029320

PATIENT
  Age: 38 Year
  Sex: Female
  Weight: 65.76 kg

DRUGS (19)
  1. SIMVASTATIN [Concomitant]
     Indication: BLOOD CHOLESTEROL INCREASED
     Route: 048
  2. NASONEX [Concomitant]
     Indication: MULTIPLE ALLERGIES
     Route: 045
  3. ADVAIR DISKUS 100/50 [Concomitant]
     Indication: ASTHMA
     Route: 045
  4. DURAPHEN DM [Concomitant]
     Indication: COUGH
     Route: 048
  5. XOPENEX [Concomitant]
     Indication: ASTHMA
     Route: 045
  6. KEFLEX [Concomitant]
     Indication: LOCALISED INFECTION
     Dosage: UNK
     Route: 048
     Dates: start: 20080530
  7. YASMIN [Suspect]
     Indication: MENSTRUATION IRREGULAR
     Dosage: UNK
     Dates: start: 20060101, end: 20080701
  8. NEXIUM [Concomitant]
     Indication: GASTROOESOPHAGEAL REFLUX DISEASE
     Route: 048
  9. ASMANEX TWISTHALER [Concomitant]
     Indication: ASTHMA
     Route: 045
  10. COMBIVENT [Concomitant]
     Indication: ASTHMA
     Route: 045
  11. DIFLUCAN [Concomitant]
     Dosage: UNK
     Route: 048
     Dates: start: 20080530
  12. SYNTHROID [Concomitant]
     Indication: HYPOTHYROIDISM
     Route: 048
  13. SINGULAIR [Concomitant]
     Indication: ASTHMA
     Route: 048
  14. CEFDINIR [Concomitant]
     Indication: LOCALISED INFECTION
     Dosage: UNK
     Dates: start: 20080709
  15. YAZ [Suspect]
     Indication: MENSTRUATION IRREGULAR
     Dosage: UNK
     Dates: start: 20060101, end: 20080701
  16. ALBUTEROL SULFATE AUTOHALER [Concomitant]
     Indication: ASTHMA
     Route: 045
  17. AMDRY-D [Concomitant]
     Route: 048
  18. PREDNISONE [Concomitant]
     Dosage: UNK
     Route: 048
     Dates: start: 20080703
  19. ZYRTEC [Concomitant]
     Indication: MULTIPLE ALLERGIES
     Route: 048

REACTIONS (3)
  - TACHYCARDIA [None]
  - PULMONARY EMBOLISM [None]
  - INJURY [None]
